FAERS Safety Report 12274279 (Version 1)
Quarter: 2016Q2

REPORT INFORMATION
  Report Type: Spontaneous
  Country: US (occurrence: US)
  Receive Date: 20160415
  Receipt Date: 20160415
  Transmission Date: 20160815
  Serious: No
  Sender: FDA-Public Use
  Company Number: US-ALLERGAN-1510484US

PATIENT
  Age: 81 Year
  Sex: Male

DRUGS (4)
  1. LUMIGAN [Suspect]
     Active Substance: BIMATOPROST
     Indication: GLAUCOMA
     Dosage: 2 GTT, QHS
     Route: 047
     Dates: start: 201505
  2. BLINK [Concomitant]
     Indication: DRY EYE
     Dosage: UNK
     Route: 047
  3. SERTRALINE [Concomitant]
     Active Substance: SERTRALINE HYDROCHLORIDE
     Indication: ANXIETY
     Dosage: UNK
     Route: 048
  4. SERTRALINE [Concomitant]
     Active Substance: SERTRALINE HYDROCHLORIDE
     Indication: DEPRESSION

REACTIONS (5)
  - Headache [Not Recovered/Not Resolved]
  - Photophobia [Unknown]
  - Rhinitis [Not Recovered/Not Resolved]
  - Feeling jittery [Unknown]
  - Extra dose administered [Not Recovered/Not Resolved]
